FAERS Safety Report 4300569-1 (Version None)
Quarter: 2004Q1

REPORT INFORMATION
  Report Type: 
  Country: None (occurrence: None)
  Receive Date: 20040217
  Receipt Date: 20040202
  Transmission Date: 20041129
  Serious: Yes (Death, Hospitalization)
  Sender: FDA-Public Use
  Company Number: 2003041691

PATIENT
  Age: 64 Year
  Sex: Male

DRUGS (10)
  1. VIAGRA [Suspect]
     Indication: PULMONARY HYPERTENSION
     Dosage: 50 MG (BID), ORAL
     Route: 048
     Dates: start: 20030731, end: 20030918
  2. WARFARIN POTASSIUM (WARFARIN POTASSIUM) [Concomitant]
  3. BERAPROST SODIUM (BERAPROST SODIUM) [Concomitant]
  4. SPIRONOLACTONE [Concomitant]
  5. ERYTHROMYCIN [Concomitant]
  6. TORSEMIDE [Concomitant]
  7. ALL OTHER THERAPEUTIC PRODUCTS [Concomitant]
  8. ETHYL ICOSAPENTATE (ETHYL ICOSAPENTATE) [Concomitant]
  9. OMEPRAZOLE [Concomitant]
  10. DIHYDROCODEINE PHOSPHATE (DIHYDROCODEINE PHOSPHATE) [Concomitant]

REACTIONS (10)
  - ACUTE MYOCARDIAL INFARCTION [None]
  - ATRIAL FIBRILLATION [None]
  - CONDITION AGGRAVATED [None]
  - FEELING ABNORMAL [None]
  - INTERSTITIAL LUNG DISEASE [None]
  - MALAISE [None]
  - PNEUMONIA [None]
  - PULMONARY FIBROSIS [None]
  - PULMONARY HYPERTENSION [None]
  - UPPER RESPIRATORY TRACT INFLAMMATION [None]
